FAERS Safety Report 9057444 (Version 4)
Quarter: 2013Q2

REPORT INFORMATION
  Report Type: Spontaneous
  Country: US (occurrence: US)
  Receive Date: 20130204
  Receipt Date: 20130528
  Transmission Date: 20140414
  Serious: Yes (Hospitalization, Disabling, Other)
  Sender: FDA-Public Use
  Company Number: US-009507513-1203USA03310

PATIENT
  Sex: Female
  Weight: 53.97 kg

DRUGS (5)
  1. FOSAMAX [Suspect]
     Indication: OSTEOPOROSIS
     Dosage: 70 MG, UNK
     Route: 048
     Dates: start: 20010808, end: 20070131
  2. FOSAMAX [Suspect]
     Dosage: 70 MG, UNK
     Route: 048
  3. ALENDRONATE SODIUM [Suspect]
     Indication: OSTEOPOROSIS
     Route: 048
     Dates: start: 200109, end: 200910
  4. ALENDRONATE SODIUM [Suspect]
     Indication: OSTEOPENIA
  5. FOSAMAX PLUS D [Suspect]
     Indication: OSTEOPOROSIS
     Dosage: 70 MG/2800
     Route: 048
     Dates: start: 20070103, end: 2009

REACTIONS (26)
  - Femur fracture [Unknown]
  - Open reduction of fracture [Not Recovered/Not Resolved]
  - Hip fracture [Unknown]
  - Osteoporosis [Not Recovered/Not Resolved]
  - Stress fracture [Not Recovered/Not Resolved]
  - Femur fracture [Not Recovered/Not Resolved]
  - Bone density decreased [Not Recovered/Not Resolved]
  - Hip fracture [Not Recovered/Not Resolved]
  - Rhabdomyolysis [Recovering/Resolving]
  - Adverse event [Unknown]
  - Adverse event [Unknown]
  - Cataract operation [Unknown]
  - Lung neoplasm malignant [Unknown]
  - Thoracotomy [Unknown]
  - Coronary artery bypass [Unknown]
  - Pain in extremity [Unknown]
  - Nerve injury [Unknown]
  - Arthritis [Unknown]
  - Muscular weakness [Unknown]
  - Hypercholesterolaemia [Unknown]
  - Coronary artery disease [Unknown]
  - Muscular weakness [Unknown]
  - Osteoarthritis [Unknown]
  - Oxygen saturation decreased [Unknown]
  - Fall [Unknown]
  - Fall [Unknown]
